FAERS Safety Report 20055856 (Version 5)
Quarter: 2022Q3

REPORT INFORMATION
  Report Type: Spontaneous
  Country: ES (occurrence: ES)
  Receive Date: 20211111
  Receipt Date: 20220715
  Transmission Date: 20221027
  Serious: Yes (Other)
  Sender: FDA-Public Use
  Company Number: ES-STADA-235537

PATIENT
  Age: 50 Year
  Sex: Female

DRUGS (24)
  1. ALPRAZOLAM [Suspect]
     Active Substance: ALPRAZOLAM
     Indication: Schizophrenia
     Dosage: 1 MILLIGRAM, 3 TIMES A DAY ((1-1-1))
     Route: 065
  2. ALPRAZOLAM [Suspect]
     Active Substance: ALPRAZOLAM
     Indication: Depression
  3. QUETIAPINE [Suspect]
     Active Substance: QUETIAPINE
     Indication: Schizophrenia
     Dosage: 300 MILLIGRAM, ONCE A DAY (300 MG Q.D.  (0-0-1))
     Route: 065
  4. QUETIAPINE [Suspect]
     Active Substance: QUETIAPINE
     Indication: Depression
  5. BUPROPION [Suspect]
     Active Substance: BUPROPION
     Indication: Schizophrenia
     Dosage: 150 MILLIGRAM, ONCE A DAY (150 MG, Q.D. (1-0-0) )
     Route: 065
  6. BUPROPION [Suspect]
     Active Substance: BUPROPION
     Indication: Depression
  7. CLOTHIAPINE [Suspect]
     Active Substance: CLOTHIAPINE
     Indication: Schizophrenia
     Dosage: 40 MILLIGRAM, ONCE A DAY (40 MG, Q.D. (0-0-1) )
     Route: 065
  8. CLOTHIAPINE [Suspect]
     Active Substance: CLOTHIAPINE
     Indication: Depression
  9. LORMETAZEPAM [Suspect]
     Active Substance: LORMETAZEPAM
     Indication: Schizophrenia
     Dosage: 2 MILLIGRAM, ONCE A DAY (2 MG, Q.D)
     Route: 065
  10. LORMETAZEPAM [Suspect]
     Active Substance: LORMETAZEPAM
     Indication: Depression
  11. TRAZODONE HYDROCHLORIDE [Suspect]
     Active Substance: TRAZODONE HYDROCHLORIDE
     Indication: Schizophrenia
     Dosage: 100 MILLIGRAM (0-0-1)
     Route: 065
  12. TRAZODONE HYDROCHLORIDE [Suspect]
     Active Substance: TRAZODONE HYDROCHLORIDE
     Indication: Depression
  13. TRAZODONE [Suspect]
     Active Substance: TRAZODONE HYDROCHLORIDE
     Indication: Schizophrenia
     Dosage: 100 MILLIGRAM, ONCE A DAY (100 MG, Q.D. (0-0-1) )
     Route: 065
  14. TRAZODONE [Suspect]
     Active Substance: TRAZODONE HYDROCHLORIDE
     Indication: Depression
  15. REBOXETINE [Suspect]
     Active Substance: REBOXETINE
     Indication: Schizophrenia
     Dosage: 4 MILLIGRAM, TWO TIMES A DAY (4 MG, B.I.D. (1-1-0) )
     Route: 065
  16. REBOXETINE [Suspect]
     Active Substance: REBOXETINE
     Indication: Depression
  17. TIOTROPIUM BROMIDE [Concomitant]
     Active Substance: TIOTROPIUM BROMIDE
     Indication: Emphysema
     Dosage: 2.5 MILLIGRAM, ONCE A DAY (2.5 MG, Q.D. )
     Route: 065
     Dates: start: 2019
  18. PREGABALIN [Concomitant]
     Active Substance: PREGABALIN
     Indication: Intervertebral disc protrusion
     Dosage: 150 MILLIGRAM, 3 TIMES A DAY (UNK, T.I.D. , (1-1-1); )
     Route: 065
  19. BUDESONIDE\FORMOTEROL [Concomitant]
     Active Substance: BUDESONIDE\FORMOTEROL
     Indication: Emphysema
     Dosage: 160 MILLIGRAM (INHALERS)
     Dates: start: 2019
  20. FENTANYL [Concomitant]
     Active Substance: FENTANYL
     Indication: Intervertebral disc protrusion
     Dosage: 25 MICROGRAM, EVERY HOUR (TRANSDERMAL PATCHES, CHANGED EVERY THREE DAYS)
     Route: 062
     Dates: start: 2019
  21. ACETAMINOPHEN [Concomitant]
     Active Substance: ACETAMINOPHEN
     Indication: Intervertebral disc protrusion
     Dosage: 1 GRAM, 3 TIMES A DAY (1 GRAM, T.I.D. )
     Route: 065
     Dates: start: 2019
  22. OMEPRAZOLE [Concomitant]
     Active Substance: OMEPRAZOLE
     Indication: Intervertebral disc protrusion
     Dosage: 20 MILLIGRAM, TWO TIMES A DAY (20 MG, Q.D. )
     Route: 065
     Dates: start: 2019
  23. CETYLPYRIDINIUM CHLORIDE;CHLORHEXIDINE [Concomitant]
     Indication: Product used for unknown indication
     Dosage: UNK, 3 TIMES A DAY (FOR TWO WEEKS)
     Route: 065
  24. OXYGEN [Concomitant]
     Active Substance: OXYGEN
     Indication: Product used for unknown indication
     Dosage: UNK
     Route: 065

REACTIONS (2)
  - Dry mouth [Recovered/Resolved]
  - Oral candidiasis [Recovered/Resolved]
